FAERS Safety Report 10684937 (Version 5)
Quarter: 2015Q2

REPORT INFORMATION
  Report Type: Spontaneous
  Country: BR (occurrence: BR)
  Receive Date: 20141231
  Receipt Date: 20150518
  Transmission Date: 20150821
  Serious: Yes (Hospitalization, Other)
  Sender: FDA-Public Use
  Company Number: BR-SA-2014SA175953

PATIENT
  Age: 67 Year
  Sex: Male
  Weight: 64 kg

DRUGS (10)
  1. LANTUS [Suspect]
     Active Substance: INSULIN GLARGINE
     Indication: TYPE 1 DIABETES MELLITUS
     Dosage: LANTUS (INSULIN GLARGINE) 3ML CARTRIDGE, 18 IU DAILY IN MORNING
     Route: 065
  2. LANTUS [Suspect]
     Active Substance: INSULIN GLARGINE
     Indication: TYPE 1 DIABETES MELLITUS
     Dosage: LANTUS (INSULIN GLARGINE) 3ML CARTRIDGE, 18 IU DAILY IN MORNING
     Route: 065
  3. NPH INSULIN [Suspect]
     Active Substance: INSULIN BEEF
     Indication: TYPE 1 DIABETES MELLITUS
     Route: 065
  4. AUTOPEN 24 [Concomitant]
     Active Substance: DEVICE
     Indication: DEVICE THERAPY
  5. LANTUS [Suspect]
     Active Substance: INSULIN GLARGINE
     Indication: TYPE 1 DIABETES MELLITUS
     Dosage: LANTUS (INSULIN GLARGINE) 3ML CARTRIDGE, 18 IU DAILY IN MORNING
     Route: 065
  6. INSULINS AND ANALOGUES,FAST-ACTING [Suspect]
     Active Substance: INSULIN NOS
     Indication: TYPE 1 DIABETES MELLITUS
     Route: 065
  7. SOLOSTAR [Concomitant]
     Active Substance: DEVICE
     Dates: start: 2012
  8. ACETYLSALICYLIC ACID [Concomitant]
     Active Substance: ASPIRIN
     Indication: ANTICOAGULANT THERAPY
     Route: 048
     Dates: start: 2004
  9. APIDRA SOLOSTAR [Suspect]
     Active Substance: INSULIN GLULISINE
     Indication: TYPE 1 DIABETES MELLITUS
     Dosage: THERAPY START DATE: 2 YEARS AGO, 4 IU DAILY BEFORE LUNCH AND DINNER?DOSE 2 -10 IU
     Route: 065
     Dates: start: 2012
  10. LANTUS [Suspect]
     Active Substance: INSULIN GLARGINE
     Indication: TYPE 1 DIABETES MELLITUS
     Dosage: LANTUS (INSULIN GLARGINE) 3ML CARTRIDGE, 18 IU DAILY IN MORNING
     Route: 065
     Dates: start: 2007

REACTIONS (19)
  - Hyperhidrosis [Recovered/Resolved]
  - Blood glucose fluctuation [Not Recovered/Not Resolved]
  - Hyperglycaemia [Recovered/Resolved]
  - Fall [Unknown]
  - Intestinal dilatation [Recovered/Resolved]
  - Rib fracture [Recovered/Resolved]
  - Urinary tract infection [Recovered/Resolved]
  - Loss of consciousness [Recovered/Resolved]
  - Anaemia [Recovering/Resolving]
  - Hypotension [Recovering/Resolving]
  - Foaming at mouth [Recovered/Resolved]
  - Haemorrhage intracranial [Recovered/Resolved]
  - Dizziness [Recovering/Resolving]
  - Blood pressure abnormal [Recovering/Resolving]
  - Malaise [Recovering/Resolving]
  - Vision blurred [Recovered/Resolved]
  - Pleural effusion [Unknown]
  - Hypoglycaemia [Recovered/Resolved]
  - Malaise [Recovered/Resolved]

NARRATIVE: CASE EVENT DATE: 201412
